FAERS Safety Report 13622433 (Version 1)
Quarter: 2017Q2

REPORT INFORMATION
  Report Type: Spontaneous
  Country: US (occurrence: US)
  Receive Date: 20170607
  Receipt Date: 20170607
  Transmission Date: 20170830
  Serious: No
  Sender: FDA-Public Use
  Company Number: US-ROCHE-1907032

PATIENT
  Age: 79 Year
  Sex: Male

DRUGS (4)
  1. PANCRELIPASE. [Concomitant]
     Active Substance: PANCRELIPASE
  2. LISINOPRIL. [Concomitant]
     Active Substance: LISINOPRIL
  3. CAPECITABINE. [Suspect]
     Active Substance: CAPECITABINE
     Indication: ADENOCARCINOMA PANCREAS
     Dosage: 1600 MG/M2 IN TWO DIVIDED DOSES = 3200 MG/M2 PER DAY MONDAY TO FRIDAY WITH WEEKENDS OFF),
     Route: 065
  4. OMEPRAZOLE. [Concomitant]
     Active Substance: OMEPRAZOLE

REACTIONS (6)
  - Vomiting [Unknown]
  - Palmar-plantar erythrodysaesthesia syndrome [Unknown]
  - Peripheral sensorimotor neuropathy [Recovering/Resolving]
  - Diarrhoea [Unknown]
  - Nausea [Unknown]
  - Peroneal nerve palsy [Recovering/Resolving]
